FAERS Safety Report 23297674 (Version 3)
Quarter: 2024Q1

REPORT INFORMATION
  Report Type: Report from Study
  Country: CA (occurrence: CA)
  Receive Date: 20231214
  Receipt Date: 20240120
  Transmission Date: 20240410
  Serious: Yes (Death, Hospitalization, Other)
  Sender: FDA-Public Use
  Company Number: CA-ABBVIE-5537706

PATIENT
  Sex: Female

DRUGS (3)
  1. VENCLEXTA [Suspect]
     Active Substance: VENETOCLAX
     Indication: Acute myeloid leukaemia
     Route: 048
     Dates: start: 20231120, end: 2023
  2. LEVOPHED [Concomitant]
     Active Substance: NOREPINEPHRINE BITARTRATE
     Indication: Product used for unknown indication
  3. AZACITIDINE [Concomitant]
     Active Substance: AZACITIDINE
     Indication: Product used for unknown indication

REACTIONS (15)
  - Death [Fatal]
  - Shock [Fatal]
  - Device related bacteraemia [Unknown]
  - Blood pressure systolic decreased [Fatal]
  - Neutropenia [Fatal]
  - Haemoglobin abnormal [Fatal]
  - Central venous catheterisation [Unknown]
  - Staphylococcal infection [Unknown]
  - Acute myeloid leukaemia recurrent [Fatal]
  - Bacteraemia [Fatal]
  - Graft versus host disease [Unknown]
  - Immunosuppression [Unknown]
  - Cardiac valve disease [Unknown]
  - Sepsis [Unknown]
  - Myelosuppression [Unknown]

NARRATIVE: CASE EVENT DATE: 20230101
